FAERS Safety Report 6033317-8 (Version None)
Quarter: 2009Q1

REPORT INFORMATION
  Report Type: 
  Country: None (occurrence: None)
  Receive Date: 20090109
  Receipt Date: 20090108
  Transmission Date: 20090719
  Serious: Yes (Hospitalization)
  Sender: FDA-Public Use
  Company Number: JP-ELI_LILLY_AND_COMPANY-JP200901001141

PATIENT
  Age: 65 Year
  Sex: Male

DRUGS (2)
  1. GEMZAR [Suspect]
     Indication: PANCREATIC CARCINOMA
     Dosage: 1400 MG, OTHER
     Route: 042
     Dates: start: 20080910, end: 20081119
  2. TS 1 [Concomitant]
     Indication: PANCREATIC CARCINOMA
     Dosage: 100 MG, DAILY (1/D)
     Route: 048
     Dates: start: 20080910, end: 20081126

REACTIONS (1)
  - LUNG DISORDER [None]
